FAERS Safety Report 5306674-5 (Version None)
Quarter: 2007Q2

REPORT INFORMATION
  Report Type: 
  Country: None (occurrence: None)
  Receive Date: 20070424
  Receipt Date: 20070416
  Transmission Date: 20071010
  Serious: Yes (Congenital Anomaly)
  Sender: FDA-Public Use
  Company Number: US-PFIZER INC-2007030619

PATIENT

DRUGS (2)
  1. NELFINAVIR MESILATE [Suspect]
     Route: 048
  2. COMBIVIR [Suspect]
     Dosage: DAILY DOSE:900MG
     Route: 048
     Dates: start: 20070212

REACTIONS (2)
  - CONGENITAL CHOROID PLEXUS CYST [None]
  - DRUG EXPOSURE DURING PREGNANCY [None]
